FAERS Safety Report 6677423-3 (Version None)
Quarter: 2010Q2

REPORT INFORMATION
  Report Type: 
  Country: None (occurrence: None)
  Receive Date: 20100412
  Receipt Date: 20100203
  Transmission Date: 20101027
  Serious: No
  Sender: FDA-Public Use
  Company Number: DE-ALEXION-A201000139

PATIENT

DRUGS (4)
  1. SOLIRIS [Suspect]
     Indication: PAROXYSMAL NOCTURNAL HAEMOGLOBINURIA
     Dosage: UNK
     Route: 042
     Dates: start: 20090805
  2. MARCUMAR [Concomitant]
     Indication: THROMBOSIS
     Dosage: 1/2, QD
     Route: 048
     Dates: start: 20090801
  3. KEPPRA [Concomitant]
     Indication: CONVULSION
     Dosage: 1, BID
     Route: 048
     Dates: start: 20090101
  4. DECORTIN [Concomitant]
     Indication: PAROXYSMAL NOCTURNAL HAEMOGLOBINURIA
     Dosage: UNK
     Dates: start: 20090101, end: 20090901

REACTIONS (2)
  - PYREXIA [None]
  - URINARY TRACT INFECTION [None]
